FAERS Safety Report 25398346 (Version 1)
Quarter: 2025Q2

REPORT INFORMATION
  Report Type: Spontaneous
  Country: US (occurrence: US)
  Receive Date: 20250604
  Receipt Date: 20250604
  Transmission Date: 20250717
  Serious: No
  Sender: INCYTE
  Company Number: US-EVENT-002951

PATIENT

DRUGS (2)
  1. OPZELURA [Suspect]
     Active Substance: RUXOLITINIB PHOSPHATE
     Indication: Neurodermatitis
     Route: 065
  2. DUPIXENT [Concomitant]
     Active Substance: DUPILUMAB
     Indication: Product used for unknown indication
     Route: 065

REACTIONS (1)
  - Neurodermatitis [Unknown]
